FAERS Safety Report 7625274-5 (Version None)
Quarter: 2011Q3

REPORT INFORMATION
  Report Type: 
  Country: None (occurrence: None)
  Receive Date: 20110713
  Receipt Date: 20110628
  Transmission Date: 20111222
  Serious: Yes (Life-Threatening, Hospitalization)
  Sender: FDA-Public Use
  Company Number: 2011MA008160

PATIENT
  Age: 53 Year
  Sex: Male

DRUGS (3)
  1. RISPERIDONE [Suspect]
     Dosage: 1 MG;
     Dates: start: 20090521
  2. HALOPERIDOL [Concomitant]
  3. LORAZEPAM [Concomitant]

REACTIONS (6)
  - PNEUMONIA ASPIRATION [None]
  - CEREBRAL ISCHAEMIA [None]
  - NEUROLEPTIC MALIGNANT SYNDROME [None]
  - RESPIRATORY ALKALOSIS [None]
  - RHABDOMYOLYSIS [None]
  - BLOOD SODIUM DECREASED [None]
